FAERS Safety Report 13388192 (Version 1)
Quarter: 2017Q1

REPORT INFORMATION
  Report Type: Spontaneous
  Country: CN (occurrence: CN)
  Receive Date: 20170330
  Receipt Date: 20170330
  Transmission Date: 20170429
  Serious: Yes (Hospitalization)
  Sender: FDA-Public Use
  Company Number: PHHY2017CN044442

PATIENT
  Age: 92 Year
  Sex: Male

DRUGS (3)
  1. AMLODIPINE BESYLATE. [Suspect]
     Active Substance: AMLODIPINE BESYLATE
     Indication: HYPERTENSION
     Dosage: UNK
     Route: 065
  2. BENAZEPRIL [Suspect]
     Active Substance: BENAZEPRIL HYDROCHLORIDE
     Indication: HYPERTENSION
     Dosage: UNK
     Route: 048
  3. AMLODIPINE BESYLATE. [Suspect]
     Active Substance: AMLODIPINE BESYLATE
     Dosage: 5 MG, QD
     Route: 065

REACTIONS (9)
  - Gait disturbance [Unknown]
  - Cough [Unknown]
  - Cerebral infarction [Unknown]
  - Drug ineffective [Unknown]
  - Productive cough [Unknown]
  - Paralysis [Unknown]
  - Movement disorder [Unknown]
  - Muscular weakness [Recovering/Resolving]
  - Hypertriglyceridaemia [Unknown]
